FAERS Safety Report 18183416 (Version 1)
Quarter: 2020Q3

REPORT INFORMATION
  Report Type: Spontaneous
  Country: FR (occurrence: FR)
  Receive Date: 20200822
  Receipt Date: 20200822
  Transmission Date: 20201103
  Serious: Yes (Hospitalization)
  Sender: FDA-Public Use
  Company Number: NVSC2020FR230228

PATIENT
  Age: 92 Year
  Sex: Male

DRUGS (1)
  1. DOXYCYCLINE SANDOZ [Suspect]
     Active Substance: DOXYCYCLINE
     Indication: SKIN INFECTION
     Dosage: 200 MG, QD
     Route: 048
     Dates: start: 20200512, end: 20200618

REACTIONS (2)
  - Photosensitivity reaction [Recovering/Resolving]
  - Feeling hot [Recovering/Resolving]

NARRATIVE: CASE EVENT DATE: 20200615
